FAERS Safety Report 8177563-6 (Version None)
Quarter: 2012Q1

REPORT INFORMATION
  Report Type: 
  Country: None (occurrence: None)
  Receive Date: 20120301
  Receipt Date: 20120221
  Transmission Date: 20120608
  Serious: Yes (Other)
  Sender: FDA-Public Use
  Company Number: US-JNJFOC-20120111358

PATIENT
  Sex: Female
  Weight: 48.08 kg

DRUGS (19)
  1. ACETAMINOPHEN [Concomitant]
     Indication: PREMEDICATION
     Route: 048
     Dates: start: 20120124
  2. LORTAB [Concomitant]
     Indication: PAIN
     Dosage: 10MG- 500MG
     Route: 048
  3. MULTI-VITAMINS [Concomitant]
     Route: 048
  4. WARFARIN SODIUM [Concomitant]
     Route: 048
  5. PROMETHAZINE [Concomitant]
     Route: 048
  6. LISINOPRIL [Concomitant]
     Route: 048
  7. XANAX [Concomitant]
     Route: 048
  8. VITAMIN D [Concomitant]
     Route: 048
  9. REMICADE [Suspect]
     Dosage: 4TH INFUSION
     Route: 042
     Dates: start: 20120124, end: 20120124
  10. PROTONIX [Concomitant]
     Route: 048
  11. MAXAIR [Concomitant]
     Dosage: 200MCG/INHALATION BREATH ACTIVATED INHALE 2 PUFF(0.4MG) BY INHALATION ROUTE 4-6 HR AS NEEDED
     Route: 055
  12. CLARITIN [Concomitant]
     Indication: PREMEDICATION
     Route: 048
     Dates: start: 20120124
  13. STOOL SOFTENER [Concomitant]
     Route: 048
  14. HYDROCORTISONE [Concomitant]
     Route: 048
  15. ALLEGRA [Concomitant]
     Dosage: 180MG-240MG ON AN EMPTY STOMACH WITH A GLASS OF WATER
     Route: 048
  16. MIRALAX [Concomitant]
     Dosage: MIX WITH 8 OZ. WATER, JUICE, SODA, COFFEE OR TEA
     Route: 048
  17. REMICADE [Suspect]
     Indication: CROHN'S DISEASE
     Route: 042
     Dates: start: 20111024, end: 20120124
  18. HYOSCYAMINE [Concomitant]
     Dosage: BEFORE MEAL
     Route: 060
  19. ZOLOFT [Concomitant]
     Route: 048

REACTIONS (11)
  - ARTHRALGIA [None]
  - INFUSION RELATED REACTION [None]
  - HYPERHIDROSIS [None]
  - CHEST PAIN [None]
  - DYSPNOEA [None]
  - MUSCLE TIGHTNESS [None]
  - JOINT SWELLING [None]
  - MUSCULAR WEAKNESS [None]
  - DYSKINESIA [None]
  - RASH [None]
  - PAIN [None]
